FAERS Safety Report 6555092-0 (Version None)
Quarter: 2010Q1

REPORT INFORMATION
  Report Type: 
  Country: None (occurrence: None)
  Receive Date: 20100126
  Receipt Date: 20100126
  Transmission Date: 20100710
  Serious: No
  Sender: FDA-Public Use
  Company Number: None

PATIENT
  Age: 73 Year
  Sex: Female
  Weight: 77.3 kg

DRUGS (1)
  1. ROBITUSSIN DM (ADULT) [Suspect]
     Dosage: AS PER LABEL

REACTIONS (2)
  - ABDOMINAL DISCOMFORT [None]
  - PRODUCT ODOUR ABNORMAL [None]
